FAERS Safety Report 15954506 (Version 2)
Quarter: 2019Q1

REPORT INFORMATION
  Report Type: Spontaneous
  Country: RO (occurrence: RO)
  Receive Date: 20190212
  Receipt Date: 20190318
  Transmission Date: 20190417
  Serious: Yes (Hospitalization)
  Sender: FDA-Public Use
  Company Number: RO-MYLANLABS-2019M1011948

PATIENT
  Age: 3 Year
  Sex: Female

DRUGS (2)
  1. OXACILLIN [Suspect]
     Active Substance: OXACILLIN SODIUM
     Indication: CHALAZION
     Dosage: UNK Q10D
     Route: 065
  2. CHLORAMPHENICOL [Suspect]
     Active Substance: CHLORAMPHENICOL
     Indication: CHALAZION
     Dosage: UNKQ10D
     Route: 061

REACTIONS (3)
  - Condition aggravated [Unknown]
  - Chalazion [Unknown]
  - Therapy non-responder [Recovered/Resolved]
